FAERS Safety Report 22615179 (Version 1)
Quarter: 2023Q2

REPORT INFORMATION
  Report Type: Spontaneous
  Country: US (occurrence: None)
  Receive Date: 20230619
  Receipt Date: 20230619
  Transmission Date: 20230721
  Serious: No
  Sender: FDA-Public Use
  Company Number: 2023A126960

PATIENT
  Sex: Female
  Weight: 71.7 kg

DRUGS (1)
  1. KOSELUGO [Suspect]
     Active Substance: SELUMETINIB
     Indication: Neurofibromatosis
     Route: 048
     Dates: start: 20210201, end: 20230523

REACTIONS (4)
  - Headache [Unknown]
  - Rash [Unknown]
  - Therapy cessation [Unknown]
  - Insurance issue [Unknown]
